FAERS Safety Report 18407967 (Version 4)
Quarter: 2025Q2

REPORT INFORMATION
  Report Type: Spontaneous
  Country: FR (occurrence: FR)
  Receive Date: 20201021
  Receipt Date: 20250620
  Transmission Date: 20250716
  Serious: Yes (Hospitalization, Other)
  Sender: AUROBINDO
  Company Number: FR-EMA-20130926-TANVIEVHP-105206972

PATIENT
  Age: 10 Year
  Sex: Female

DRUGS (6)
  1. IBUPROFEN [Suspect]
     Active Substance: IBUPROFEN
     Indication: Pyrexia
     Route: 048
  2. IBUPROFEN [Suspect]
     Active Substance: IBUPROFEN
     Indication: Nasopharyngitis
  3. BETAMETHASONE [Concomitant]
     Active Substance: BETAMETHASONE
     Indication: Product used for unknown indication
     Route: 065
  4. OXATOMIDE [Concomitant]
     Active Substance: OXATOMIDE
     Indication: Product used for unknown indication
     Route: 065
  5. RIFAMPIN [Concomitant]
     Active Substance: RIFAMPIN
     Indication: Product used for unknown indication
     Route: 065
  6. URSODIOL [Concomitant]
     Active Substance: URSODIOL
     Indication: Product used for unknown indication
     Route: 065

REACTIONS (11)
  - Hepatitis [Recovered/Resolved]
  - Stevens-Johnson syndrome [Recovered/Resolved]
  - Vanishing bile duct syndrome [Recovered/Resolved]
  - Cholestasis [Recovered/Resolved]
  - Arthralgia [Recovered/Resolved]
  - Faeces discoloured [Recovered/Resolved]
  - Conjunctivitis [Recovered/Resolved]
  - Cheilitis [Recovered/Resolved]
  - Chromaturia [Recovered/Resolved]
  - Pharyngeal erythema [Recovered/Resolved]
  - Rash maculo-papular [Recovered/Resolved]
